FAERS Safety Report 18672417 (Version 1)
Quarter: 2020Q4

REPORT INFORMATION
  Report Type: Other
  Country: US (occurrence: US)
  Receive Date: 20201229
  Receipt Date: 20201229
  Transmission Date: 20210114
  Serious: Yes (Other)
  Sender: FDA-Public Use
  Company Number: US-ROCHE-2604009

PATIENT
  Sex: Female

DRUGS (1)
  1. OCREVUS [Suspect]
     Active Substance: OCRELIZUMAB
     Indication: RELAPSING MULTIPLE SCLEROSIS
     Dosage: INFUSE 300MG INTRAVENOUSLY ON DAYS 1 AND 15 THEN?SUBSEQUENT DOSE ON 02/AUG/2019, 09/AUG/2019, 23/AUG
     Route: 042
     Dates: start: 20171221

REACTIONS (19)
  - Peripheral paralysis [Unknown]
  - Pain in extremity [Unknown]
  - Oropharyngeal pain [Unknown]
  - Hair injury [Unknown]
  - Intentional product misuse [Unknown]
  - Off label use [Unknown]
  - Impaired gastric emptying [Unknown]
  - Tooth fracture [Not Recovered/Not Resolved]
  - Malaise [Unknown]
  - Fracture [Unknown]
  - Monoplegia [Unknown]
  - Vocal cord dysfunction [Unknown]
  - Arthralgia [Unknown]
  - Depression [Unknown]
  - Muscle atrophy [Unknown]
  - Pain [Unknown]
  - Aphonia [Unknown]
  - Respiratory disorder [Unknown]
  - Speech disorder [Not Recovered/Not Resolved]
